FAERS Safety Report 7481213-1 (Version None)
Quarter: 2011Q2

REPORT INFORMATION
  Report Type: 
  Country: None (occurrence: None)
  Receive Date: 20110516
  Receipt Date: 20110509
  Transmission Date: 20111010
  Serious: Yes (Hospitalization)
  Sender: FDA-Public Use
  Company Number: US-SANOFI-AVENTIS-200915948EU

PATIENT
  Age: 60 Year
  Sex: Female
  Weight: 70.3 kg

DRUGS (13)
  1. MONTELUKAST SODIUM [Concomitant]
  2. INVESTIGATIONAL DRUG [Suspect]
     Indication: RHEUMATOID ARTHRITIS
     Route: 048
     Dates: start: 20080122, end: 20090831
  3. WARFARIN SODIUM [Concomitant]
  4. LORTAB [Concomitant]
  5. FOLIC ACID [Concomitant]
  6. CARVEDILOL [Concomitant]
  7. METOLAZONE [Suspect]
     Dosage: 2.5 MG 1X/DAY MON, WED AND FRI.
     Route: 065
     Dates: start: 20090727
  8. LASIX [Suspect]
     Dosage: DOSE AS USED: UNK
     Route: 048
     Dates: start: 19910101
  9. SPIRONOLACTONE [Suspect]
     Route: 065
  10. ADVAIR DISKUS 100/50 [Concomitant]
  11. METHOTREXATE [Concomitant]
  12. INVESTIGATIONAL DRUG [Suspect]
     Route: 048
     Dates: start: 20090902, end: 20090916
  13. PREDNISONE [Concomitant]

REACTIONS (1)
  - RENAL FAILURE ACUTE [None]
